FAERS Safety Report 7225412-2 (Version None)
Quarter: 2011Q1

REPORT INFORMATION
  Report Type: 
  Country: None (occurrence: None)
  Receive Date: 20110103
  Receipt Date: 20101220
  Transmission Date: 20110831
  Serious: Yes (Hospitalization, Other)
  Sender: FDA-Public Use
  Company Number: 2010P1003479

PATIENT
  Age: 67 Year
  Sex: Male
  Weight: 91.6266 kg

DRUGS (3)
  1. COLCHICINE [Suspect]
     Indication: GOUT
     Dosage: ;QD;PO
     Route: 048
     Dates: start: 20010101, end: 20100101
  2. DIABETIC MEDICINE [Concomitant]
  3. ASPIRIN [Concomitant]

REACTIONS (2)
  - MASS [None]
  - INTRACARDIAC THROMBUS [None]
